FAERS Safety Report 7544796-9 (Version None)
Quarter: 2011Q2

REPORT INFORMATION
  Report Type: 
  Country: None (occurrence: None)
  Receive Date: 20110614
  Receipt Date: 20110601
  Transmission Date: 20111010
  Serious: Yes (Life-Threatening)
  Sender: FDA-Public Use
  Company Number: US-BAYER-2011-048141

PATIENT
  Sex: Male

DRUGS (2)
  1. AVELOX [Suspect]
     Indication: SINUSITIS
     Dosage: 400 MG, QD
     Route: 048
  2. ZITHROMAX [Concomitant]

REACTIONS (6)
  - SWOLLEN TONGUE [None]
  - PHARYNGEAL OEDEMA [None]
  - URTICARIA [None]
  - TONGUE PRURITUS [None]
  - DYSPNOEA [None]
  - HYPERSENSITIVITY [None]
